FAERS Safety Report 7107305-4 (Version None)
Quarter: 2010Q4

REPORT INFORMATION
  Report Type: 
  Country: None (occurrence: None)
  Receive Date: 20101117
  Receipt Date: 20101020
  Transmission Date: 20110411
  Serious: Yes (Death, Other)
  Sender: FDA-Public Use
  Company Number: GB-AMGEN-US406044

PATIENT

DRUGS (11)
  1. ETANERCEPT [Suspect]
     Indication: RHEUMATOID ARTHRITIS
     Route: 058
     Dates: start: 20041125, end: 20091223
  2. CO-CODAMOL [Concomitant]
     Dosage: UNKNOWN
  3. RAMIPRIL [Concomitant]
     Dosage: UNK UNK, UNK
  4. RAMIPRIL [Concomitant]
     Dosage: UNKNOWN
  5. HYPROMELLOSE [Concomitant]
     Dosage: UNK UNK, UNK
  6. HYPROMELLOSE [Concomitant]
     Dosage: UNKNOWN
  7. LANSOPRAZOLE [Concomitant]
     Dosage: UNK UNK, UNK
  8. LANSOPRAZOLE [Concomitant]
     Dosage: UNKNOWN
  9. AMLODIPINE [Concomitant]
     Dosage: UNK UNK, UNK
  10. AMLODIPINE [Concomitant]
     Dosage: UNKNOWN
  11. FRUSEMIDE [Concomitant]
     Dosage: UNKNOWN

REACTIONS (9)
  - ACUTE MYOCARDIAL INFARCTION [None]
  - CHOLECYSTITIS ACUTE [None]
  - CORONARY ARTERY DISSECTION [None]
  - CORONARY ARTERY OCCLUSION [None]
  - ENDOMETRIAL CANCER [None]
  - IATROGENIC INJURY [None]
  - MITRAL VALVE INCOMPETENCE [None]
  - PULMONARY OEDEMA [None]
  - THROMBOSIS IN DEVICE [None]
